FAERS Safety Report 7725348-4 (Version None)
Quarter: 2011Q3

REPORT INFORMATION
  Report Type: 
  Country: None (occurrence: None)
  Receive Date: 20110830
  Receipt Date: 20110607
  Transmission Date: 20111222
  Serious: Yes (Life-Threatening, Hospitalization)
  Sender: FDA-Public Use
  Company Number: GER/GER/11/0018689

PATIENT
  Age: 73 Year
  Sex: Female
  Weight: 100 kg

DRUGS (1)
  1. METFORMIN HCL [Suspect]
     Indication: TYPE 2 DIABETES MELLITUS
     Dosage: 1000 MG, 2 IN 1 D, ORAL
     Route: 048

REACTIONS (5)
  - RENAL FAILURE ACUTE [None]
  - SOMNOLENCE [None]
  - LACTIC ACIDOSIS [None]
  - HAEMODIALYSIS [None]
  - BLOOD CREATINE PHOSPHOKINASE INCREASED [None]
